FAERS Safety Report 4356038-6 (Version None)
Quarter: 2004Q2

REPORT INFORMATION
  Report Type: 
  Country: None (occurrence: None)
  Receive Date: 20040511
  Receipt Date: 20040507
  Transmission Date: 20050107
  Serious: Yes (Disabling)
  Sender: FDA-Public Use
  Company Number: CH-ROCHE-367026

PATIENT
  Age: 14 Year
  Sex: Female

DRUGS (3)
  1. ROACCUTAN [Suspect]
     Indication: ACNE
     Route: 048
     Dates: start: 20030615
  2. ROACCUTAN [Suspect]
     Route: 048
     Dates: start: 20040419
  3. ROACCUTAN [Suspect]
     Route: 048
     Dates: start: 20040423

REACTIONS (1)
  - FACIAL PALSY [None]
